FAERS Safety Report 8208756 (Version 3)
Quarter: 2013Q1

REPORT INFORMATION
  Report Type: Spontaneous
  Country: GR (occurrence: GR)
  Receive Date: 20111028
  Receipt Date: 20130104
  Transmission Date: 20140127
  Serious: Yes (Hospitalization, Other)
  Sender: FDA-Public Use
  Company Number: GR-JNJFOC-20111012265

PATIENT
  Age: 74 Year
  Sex: Female

DRUGS (6)
  1. RIVAROXABAN [Suspect]
     Indication: HIP ARTHROPLASTY
     Route: 048
     Dates: start: 20111018, end: 20111020
  2. RIVAROXABAN [Suspect]
     Indication: THROMBOSIS PROPHYLAXIS
     Route: 048
     Dates: start: 20111018, end: 20111020
  3. CEFUROXIME SODIUM [Concomitant]
     Dates: start: 20111018
  4. ZANTAC [Concomitant]
     Dates: start: 20111018
  5. LONARID [Concomitant]
     Indication: ANALGESIC THERAPY
     Dates: start: 20111018
  6. BLOOD AND RELATED PRODUCTS [Concomitant]
     Route: 042

REACTIONS (3)
  - Thrombocytopenia [Not Recovered/Not Resolved]
  - Incision site haemorrhage [Not Recovered/Not Resolved]
  - Lung infection [Unknown]
